FAERS Safety Report 18539489 (Version 1)
Quarter: 2020Q4

REPORT INFORMATION
  Report Type: Spontaneous
  Country: GB (occurrence: GB)
  Receive Date: 20201124
  Receipt Date: 20201124
  Transmission Date: 20210114
  Serious: Yes (Other)
  Sender: FDA-Public Use
  Company Number: GB-TEVA-2020-GB-1851446

PATIENT
  Age: 33 Year
  Sex: Female
  Weight: 88 kg

DRUGS (9)
  1. FOLIC ACID. [Concomitant]
     Active Substance: FOLIC ACID
     Dosage: 1 DF
     Dates: start: 20200327
  2. DOXYCYCLINE. [Suspect]
     Active Substance: DOXYCYCLINE
     Dosage: 2 NOW THEN 1/DAY
     Dates: start: 20201013
  3. HUMULIN L [Concomitant]
     Active Substance: INSULIN HUMAN
     Indication: BLOOD GLUCOSE
     Dosage: AS DIRECTED
     Dates: start: 20200327
  4. SALBUTAMOL [Concomitant]
     Active Substance: ALBUTEROL
     Dosage: 2 DF
     Route: 055
     Dates: start: 20200327
  5. ACETYLSALICYLIC ACID [Concomitant]
     Active Substance: ASPIRIN
     Dosage: 1 DF
     Dates: start: 20200327
  6. DIHYDROCODEINE [Concomitant]
     Active Substance: DIHYDROCODEINE
     Dosage: EVERY 4-6 HOURS
     Dates: start: 20201013
  7. FOSTAIR [Concomitant]
     Active Substance: BECLOMETHASONE\FORMOTEROL
     Dosage: PUFF WITH SPACER, 4 DF
     Route: 055
     Dates: start: 20200327
  8. OMEPRAZOLE. [Concomitant]
     Active Substance: OMEPRAZOLE
     Dosage: 1 DF
     Dates: start: 20200817
  9. ACIDEX [Concomitant]
     Active Substance: CALCIUM CARBONATE\SODIUM ALGINATE\SODIUM BICARBONATE
     Dosage: 5ML-10ML AFTER FOOD AND AT BEDTIME
     Dates: start: 20200924, end: 20201022

REACTIONS (4)
  - Pruritus [Recovered/Resolved]
  - Throat tightness [Recovered/Resolved]
  - Epistaxis [Recovered/Resolved]
  - Nausea [Recovered/Resolved]

NARRATIVE: CASE EVENT DATE: 20201026
